FAERS Safety Report 15396208 (Version 1)
Quarter: 2018Q3

REPORT INFORMATION
  Report Type: Spontaneous
  Country: US (occurrence: US)
  Receive Date: 20180912
  Receipt Date: 20180912
  Transmission Date: 20181010
  Serious: No
  Sender: FDA-Public Use
  Company Number: None

PATIENT
  Age: 75 Year
  Sex: Female
  Weight: 68.04 kg

DRUGS (2)
  1. IPRATROPIUM/ALBUTEROL 0.5?3MG (2.5MG BASE)/3ML [Suspect]
     Active Substance: ALBUTEROL\IPRATROPIUM
     Indication: PNEUMONIA
     Route: 055
     Dates: start: 20180629
  2. IPRATROPIUM/ALBUTEROL 0.5?3MG (2.5MG BASE)/3ML [Suspect]
     Active Substance: ALBUTEROL\IPRATROPIUM
     Indication: CHRONIC OBSTRUCTIVE PULMONARY DISEASE
     Route: 055
     Dates: start: 20180629

REACTIONS (6)
  - Dysphagia [None]
  - Product physical consistency issue [None]
  - Chest discomfort [None]
  - Product colour issue [None]
  - Medication residue present [None]
  - Pharyngeal oedema [None]
